FAERS Safety Report 7951706-9 (Version None)
Quarter: 2011Q4

REPORT INFORMATION
  Report Type: 
  Country: None (occurrence: None)
  Receive Date: 20111201
  Receipt Date: 20111118
  Transmission Date: 20120403
  Serious: Yes (Hospitalization)
  Sender: FDA-Public Use
  Company Number: FR-JNJFOC-20111109743

PATIENT
  Sex: Male
  Weight: 68 kg

DRUGS (19)
  1. AUGMENTIN [Concomitant]
     Indication: LUNG DISORDER
     Route: 065
  2. PIPERACILLIN AND TAZOBACTAM [Suspect]
     Indication: LUNG DISORDER
     Dosage: 4 G/500 MG
     Route: 065
     Dates: start: 20111029, end: 20111105
  3. POTASSIUM CHLORIDE [Concomitant]
     Indication: PRODUCT USED FOR UNKNOWN INDICATION
     Dosage: 2DOSES-2DOSES-2DOSES
     Route: 065
  4. OMIX [Concomitant]
     Indication: PRODUCT USED FOR UNKNOWN INDICATION
     Route: 065
  5. LOVENOX [Concomitant]
     Indication: PRODUCT USED FOR UNKNOWN INDICATION
     Route: 050
  6. ZYTIGA [Suspect]
     Route: 048
     Dates: start: 20100101, end: 20100401
  7. PREDNISONE TAB [Suspect]
     Indication: PROSTATE CANCER METASTATIC
     Route: 048
     Dates: start: 20111111
  8. NEOPOLYDEX [Concomitant]
     Indication: OTITIS EXTERNA
     Route: 065
  9. ZYTIGA [Suspect]
     Route: 048
     Dates: start: 20110401, end: 20111104
  10. GENTAMYCIN-MP [Concomitant]
     Indication: LUNG DISORDER
     Route: 065
  11. DEXTROSE [Concomitant]
     Indication: PRODUCT USED FOR UNKNOWN INDICATION
     Dosage: 5%, 100 CUBIC CENTIMETERS
     Route: 065
  12. PREDNISONE TAB [Suspect]
     Route: 048
     Dates: start: 20110401, end: 20111104
  13. OXYCONTIN [Concomitant]
     Indication: PRODUCT USED FOR UNKNOWN INDICATION
     Dosage: AS NECESSARY
     Route: 065
  14. PREDNISONE TAB [Suspect]
     Route: 048
     Dates: start: 20111105, end: 20111110
  15. POTASSIUM CHLORIDE [Concomitant]
     Indication: PRODUCT USED FOR UNKNOWN INDICATION
     Route: 065
  16. OXYCODONE HCL [Concomitant]
     Indication: PRODUCT USED FOR UNKNOWN INDICATION
     Dosage: 20-0-20
     Route: 065
  17. ZYTIGA [Suspect]
     Indication: PROSTATE CANCER METASTATIC
     Route: 048
     Dates: start: 20111106
  18. OXYCONTIN [Concomitant]
     Dosage: AS NECESSARY
     Route: 065
  19. IRBESARTAN [Concomitant]
     Indication: PRODUCT USED FOR UNKNOWN INDICATION
     Route: 065

REACTIONS (2)
  - LUNG DISORDER [None]
  - HYPOKALAEMIA [None]
